FAERS Safety Report 6805511-7 (Version None)
Quarter: 2010Q2

REPORT INFORMATION
  Report Type: 
  Country: None (occurrence: None)
  Receive Date: 20100628
  Receipt Date: 20071207
  Transmission Date: 20101027
  Serious: Yes (Other)
  Sender: FDA-Public Use
  Company Number: US-PFIZER INC-2007103597

PATIENT
  Sex: Female

DRUGS (11)
  1. GEODON [Suspect]
  2. CALCITRIOL [Concomitant]
  3. POTASSIUM [Concomitant]
  4. PERCOCET [Concomitant]
  5. NEXIUM [Concomitant]
  6. VALSARTAN [Concomitant]
  7. NORVASC [Concomitant]
  8. GLUCOPHAGE [Concomitant]
  9. MS CONTIN [Concomitant]
  10. WARFARIN [Concomitant]
  11. DOCUSATE SODIUM [Concomitant]

REACTIONS (2)
  - BLOOD CREATINE PHOSPHOKINASE INCREASED [None]
  - MYALGIA [None]
